FAERS Safety Report 10977688 (Version 1)
Quarter: 2015Q1

REPORT INFORMATION
  Report Type: Spontaneous
  Country: None (occurrence: None)
  Receive Date: 20150226
  Receipt Date: 20150226
  Transmission Date: 20150721
  Serious: No
  Sender: FDA-Public Use
  Company Number: TPA2009A03340

PATIENT
  Age: 70 Year
  Sex: Male
  Weight: 86.18 kg

DRUGS (4)
  1. LISINOPRIL. [Concomitant]
     Active Substance: LISINOPRIL
  2. ULORIC [Suspect]
     Active Substance: FEBUXOSTAT
     Indication: GOUT
     Route: 048
     Dates: start: 20091006
  3. VICODIN [Suspect]
     Active Substance: ACETAMINOPHEN\HYDROCODONE BITARTRATE
     Indication: ARTHRALGIA
  4. DIOVAN [Concomitant]
     Active Substance: VALSARTAN

REACTIONS (4)
  - Gout [None]
  - Arthralgia [None]
  - Joint swelling [None]
  - Feeling abnormal [None]

NARRATIVE: CASE EVENT DATE: 20091017
